FAERS Safety Report 19824103 (Version 2)
Quarter: 2021Q4

REPORT INFORMATION
  Report Type: Report from Study
  Country: JP (occurrence: JP)
  Receive Date: 20210913
  Receipt Date: 20211123
  Transmission Date: 20220303
  Serious: Yes (Death, Hospitalization, Other)
  Sender: FDA-Public Use
  Company Number: JP-002147023-NVSJ2021JP013070

PATIENT

DRUGS (9)
  1. RUXOLITINIB [Suspect]
     Active Substance: RUXOLITINIB
     Indication: Myelofibrosis
     Dosage: 5 MG, BID
     Route: 048
     Dates: start: 20170316, end: 20180729
  2. PREDNISOLONE [Suspect]
     Active Substance: PREDNISOLONE
     Indication: Myelofibrosis
     Dosage: 6 MG
     Route: 048
     Dates: start: 20171021, end: 20180309
  3. PREDNISOLONE [Suspect]
     Active Substance: PREDNISOLONE
     Dosage: 4 MG
     Route: 048
     Dates: start: 20180310
  4. PREDONINE [Concomitant]
     Active Substance: PREDNISOLONE
     Indication: Myelofibrosis
     Dosage: 20 MG
     Route: 048
     Dates: end: 20171020
  5. PREDONINE [Concomitant]
     Active Substance: PREDNISOLONE
     Dosage: 10 MG
     Route: 048
     Dates: start: 20171021
  6. SULFAMETHOXAZOLE\TRIMETHOPRIM [Concomitant]
     Active Substance: SULFAMETHOXAZOLE\TRIMETHOPRIM
     Indication: Opportunistic infection prophylaxis
     Dosage: APPROPRIATELY,UNK
     Route: 048
  7. FLUCONAZOLE;INTERFERON ALFA-2B;METRONIDAZOLE [Concomitant]
     Indication: Opportunistic infection prophylaxis
     Dosage: 1 DF
     Route: 048
  8. ACICLOVIR;INTERFERON ALFA-2B;LIDOCAINE [Concomitant]
     Indication: Opportunistic infection prophylaxis
     Dosage: 1 DF
     Route: 048
  9. HUMAN RED BLOOD CELL [Concomitant]
     Active Substance: HUMAN RED BLOOD CELL
     Indication: Myelofibrosis
     Dosage: UNK
     Route: 042

REACTIONS (4)
  - Pneumonia [Recovered/Resolved]
  - Sepsis [Fatal]
  - Myelofibrosis [Not Recovered/Not Resolved]
  - Malignant neoplasm progression [Not Recovered/Not Resolved]

NARRATIVE: CASE EVENT DATE: 20170604
